FAERS Safety Report 5282843-8 (Version None)
Quarter: 2007Q1

REPORT INFORMATION
  Report Type: 
  Country: None (occurrence: None)
  Receive Date: 20070329
  Receipt Date: 20070329
  Transmission Date: 20070707
  Serious: Yes (Disabling)
  Sender: FDA-Public Use
  Company Number: None

PATIENT
  Age: 44 Year
  Sex: Male

DRUGS (8)
  1. LISINOPRIL [Suspect]
     Indication: HYPERTENSION
     Dates: start: 20060928, end: 20070118
  2. FELODIPINE [Concomitant]
  3. FERROUS SULFATE [Concomitant]
  4. HYDROCHLOROTHIAZIDE [Concomitant]
  5. LISINOPRIL [Concomitant]
  6. METHYLCELLULOSE [Concomitant]
  7. POTASSIUM CHLORIDE [Concomitant]
  8. SIMVASTATIN [Concomitant]

REACTIONS (1)
  - LIP SWELLING [None]
